FAERS Safety Report 5652576-4 (Version None)
Quarter: 2008Q1

REPORT INFORMATION
  Report Type: 
  Country: None (occurrence: None)
  Receive Date: 20080305
  Receipt Date: 20080305
  Transmission Date: 20080703
  Serious: Yes (Other)
  Sender: FDA-Public Use
  Company Number: None

PATIENT
  Age: 61 Year
  Sex: Female

DRUGS (1)
  1. AZITHROMYCIN [Suspect]
     Indication: NASOPHARYNGITIS
     Dosage: 2 FIRST DAY THEN 1 FOR 4 DAYS
     Dates: start: 20080215, end: 20080219

REACTIONS (7)
  - BURNING SENSATION [None]
  - DEAFNESS UNILATERAL [None]
  - EAR INFECTION [None]
  - ERYTHEMA [None]
  - HYPERSENSITIVITY [None]
  - SWELLING FACE [None]
  - TINNITUS [None]
